FAERS Safety Report 6170521-2 (Version None)
Quarter: 2009Q2

REPORT INFORMATION
  Report Type: 
  Country: None (occurrence: None)
  Receive Date: 20090427
  Receipt Date: 20090427
  Transmission Date: 20091009
  Serious: Yes (Life-Threatening, Hospitalization, Disabling)
  Sender: FDA-Public Use
  Company Number: None

PATIENT
  Age: 48 Year
  Sex: Female
  Weight: 60.2 kg

DRUGS (13)
  1. CYCLOPHOSPHAMIDE [Suspect]
     Indication: T-CELL LYMPHOMA
     Dosage: 3430 MG TWICE IV
     Route: 042
     Dates: start: 20080714, end: 20080715
  2. ACETAMINOPHEN [Concomitant]
  3. ACYCLOVIR [Concomitant]
  4. CACO3 [Concomitant]
  5. CEFEPIME [Concomitant]
  6. HUCONAZOLE [Concomitant]
  7. FUROSEMIDE [Concomitant]
  8. LORAZEPAM [Concomitant]
  9. MAGNESIUM SULFATE [Concomitant]
  10. MRI [Concomitant]
  11. ONDANSETRAN [Concomitant]
  12. TEMAZEPAM TOCOPHEROL [Concomitant]
  13. VANCOMYCIN HCL [Concomitant]

REACTIONS (8)
  - CYTOKINE STORM [None]
  - EJECTION FRACTION DECREASED [None]
  - HYPOTENSION [None]
  - PULMONARY OEDEMA [None]
  - PYREXIA [None]
  - RESPIRATORY DISTRESS [None]
  - TACHYCARDIA [None]
  - VENTRICULAR DYSFUNCTION [None]
